FAERS Safety Report 24200266 (Version 1)
Quarter: 2024Q3

REPORT INFORMATION
  Report Type: Spontaneous
  Country: US (occurrence: None)
  Receive Date: 20240809
  Receipt Date: 20240809
  Transmission Date: 20241017
  Serious: Yes (Death)
  Sender: Public
  Company Number: None

PATIENT
  Age: 77 Year
  Sex: Male

DRUGS (1)
  1. PIRFENIDONE [Suspect]
     Active Substance: PIRFENIDONE
     Indication: Interstitial lung disease
     Dosage: 267MG TID ORAL?
     Route: 048
     Dates: start: 20221227, end: 20240720

REACTIONS (4)
  - Respiratory failure [None]
  - Hepatic cirrhosis [None]
  - Atrial fibrillation [None]
  - Encephalopathy [None]

NARRATIVE: CASE EVENT DATE: 20240724
